FAERS Safety Report 10410326 (Version 2)
Quarter: 2014Q3

REPORT INFORMATION
  Report Type: Spontaneous
  Country: FR (occurrence: FR)
  Receive Date: 20140826
  Receipt Date: 20140902
  Transmission Date: 20150326
  Serious: Yes (Hospitalization)
  Sender: FDA-Public Use
  Company Number: FR-PFIZER INC-2014232440

PATIENT
  Age: 27 Year
  Sex: Male

DRUGS (8)
  1. CYPROTERONE MYLAN [Suspect]
     Active Substance: CYPROTERONE
     Indication: PARAPHILIA
     Dosage: 100 MG, 1X/DAY
     Route: 048
  2. MIANSERIN EG [Suspect]
     Active Substance: MIANSERIN
     Dosage: 30 MG, 1X/DAY
     Route: 048
     Dates: start: 201403
  3. RISPERIDONE EG [Suspect]
     Active Substance: RISPERIDONE
     Dosage: 4 MG, 1X/DAY
     Route: 048
  4. LORAZEPAM MYLAN [Suspect]
     Active Substance: LORAZEPAM
     Dosage: 1 MG, 2X/DAY
     Route: 048
  5. LOXAPAC [Suspect]
     Active Substance: LOXAPINE SUCCINATE
     Dosage: 25 MG, 3X/DAY
     Route: 048
  6. LYRICA [Suspect]
     Active Substance: PREGABALIN
     Dosage: 50 MG, 3X/DAY
     Route: 048
     Dates: start: 201405
  7. LOXAPAC [Suspect]
     Active Substance: LOXAPINE SUCCINATE
     Dosage: 100 MG, 3X/DAY
     Route: 048
     Dates: start: 201405
  8. LEPTICUR [Suspect]
     Active Substance: TROPATEPINE HYDROCHLORIDE
     Dosage: 10 MG, 1X/DAY
     Route: 048
     Dates: start: 201405

REACTIONS (1)
  - Pulmonary embolism [Recovered/Resolved]

NARRATIVE: CASE EVENT DATE: 20140510
